FAERS Safety Report 16333391 (Version 1)
Quarter: 2019Q2

REPORT INFORMATION
  Report Type: Spontaneous
  Country: US (occurrence: US)
  Receive Date: 20190520
  Receipt Date: 20190520
  Transmission Date: 20190711
  Serious: No
  Sender: FDA-Public Use
  Company Number: US-VANDA PHARMACEUTICALS, INC-2018ILOUS001713

PATIENT
  Age: 25 Year
  Sex: Female

DRUGS (2)
  1. FANAPT [Suspect]
     Active Substance: ILOPERIDONE
     Indication: SCHIZOPHRENIA
     Dosage: 12 MG, QHS
     Route: 048
     Dates: start: 201811, end: 201811
  2. FANAPT [Suspect]
     Active Substance: ILOPERIDONE
     Dosage: 8 MG, QHS
     Route: 048
     Dates: start: 201811

REACTIONS (2)
  - Orthostatic hypotension [Unknown]
  - Drug intolerance [Unknown]

NARRATIVE: CASE EVENT DATE: 201811
